FAERS Safety Report 4490074-4 (Version None)
Quarter: 2004Q4

REPORT INFORMATION
  Report Type: 
  Country: None (occurrence: None)
  Receive Date: 20041027
  Receipt Date: 20041019
  Transmission Date: 20050328
  Serious: Yes (Other)
  Sender: FDA-Public Use
  Company Number: S04-USA-06735-01

PATIENT
  Age: 9 Year
  Sex: Female

DRUGS (3)
  1. LEXAPRO [Suspect]
     Indication: DEPRESSION
     Dosage: 10 MG QD PO
     Route: 048
     Dates: start: 20040901
  2. LEXAPRO [Suspect]
     Indication: DEPRESSION
     Dosage: 5 MG QD PO
     Route: 048
     Dates: start: 20040801, end: 20040901
  3. SEROQUEL [Concomitant]

REACTIONS (4)
  - ABNORMAL BEHAVIOUR [None]
  - DIARRHOEA [None]
  - SUICIDAL IDEATION [None]
  - SUICIDE ATTEMPT [None]
